FAERS Safety Report 8415497-X (Version None)
Quarter: 2012Q2

REPORT INFORMATION
  Report Type: 
  Country: None (occurrence: None)
  Receive Date: 20120606
  Receipt Date: 20120605
  Transmission Date: 20120825
  Serious: Yes (Other)
  Sender: FDA-Public Use
  Company Number: PHHY2012NL047884

PATIENT
  Sex: Male

DRUGS (3)
  1. ZOMETA [Suspect]
     Dosage: 4 MG/100ML (ONCE PER 42 DAY)
     Dates: start: 20120404
  2. ZOMETA [Suspect]
     Indication: PROSTATE CANCER METASTATIC
     Dosage: 4 MG/100ML (ONCE PER 42 DAY)
     Dates: start: 20120109
  3. ZOMETA [Suspect]
     Dosage: 4 MG/100 ML, (ONCE PER 42 DAY)
     Dates: start: 20120521

REACTIONS (1)
  - OSTEONECROSIS OF JAW [None]
